FAERS Safety Report 7833849-3 (Version None)
Quarter: 2011Q4

REPORT INFORMATION
  Report Type: 
  Country: None (occurrence: None)
  Receive Date: 20111024
  Receipt Date: 20111004
  Transmission Date: 20120403
  Serious: Yes (Other)
  Sender: FDA-Public Use
  Company Number: JP-GLAXOSMITHKLINE-B0753535A

PATIENT
  Sex: Female

DRUGS (5)
  1. ZYPREXA [Concomitant]
     Dosage: 20MG PER DAY
     Route: 048
     Dates: start: 20110802
  2. TEGRETOL [Concomitant]
     Dosage: 1800MG PER DAY
     Route: 048
     Dates: start: 20110802
  3. LAMICTAL [Suspect]
     Indication: BIPOLAR I DISORDER
     Dosage: 25MG PER DAY
     Route: 048
     Dates: start: 20110901, end: 20110901
  4. SEROQUEL [Concomitant]
     Dosage: 200MG PER DAY
     Route: 048
     Dates: start: 20110818
  5. LAMICTAL [Suspect]
     Dosage: 50MG PER DAY
     Route: 048
     Dates: start: 20110902, end: 20110920

REACTIONS (4)
  - STEVENS-JOHNSON SYNDROME [None]
  - ECZEMA [None]
  - PYREXIA [None]
  - RASH [None]
